FAERS Safety Report 19249004 (Version 1)
Quarter: 2021Q2

REPORT INFORMATION
  Report Type: Spontaneous
  Country: BR (occurrence: BR)
  Receive Date: 20210512
  Receipt Date: 20210512
  Transmission Date: 20210717
  Serious: Yes (Hospitalization, Other)
  Sender: FDA-Public Use
  Company Number: BR-TAKEDA-2021TUS029580

PATIENT
  Sex: Male
  Weight: 75 kg

DRUGS (1)
  1. VENVANSE [Suspect]
     Active Substance: LISDEXAMFETAMINE DIMESYLATE
     Indication: PERFORMANCE ENHANCING PRODUCT USE
     Dosage: 2 DOSAGE FORM, QD
     Route: 065
     Dates: start: 2017

REACTIONS (9)
  - Off label use [Unknown]
  - Delirium [Unknown]
  - Drug dependence [Unknown]
  - Persecutory delusion [Unknown]
  - Anxiety [Unknown]
  - Paranoia [Unknown]
  - Overdose [Unknown]
  - Intentional product misuse [Unknown]
  - Hospitalisation [Unknown]
